FAERS Safety Report 18123039 (Version 4)
Quarter: 2020Q3

REPORT INFORMATION
  Report Type: Other
  Country: SK (occurrence: SK)
  Receive Date: 20200807
  Receipt Date: 20200904
  Transmission Date: 20201103
  Serious: Yes (Hospitalization, Other)
  Sender: FDA-Public Use
  Company Number: SK-STRIDES ARCOLAB LIMITED-2020SP008168

PATIENT
  Age: 14 Year
  Sex: Female

DRUGS (5)
  1. IBUPROFEN. [Suspect]
     Active Substance: IBUPROFEN
     Indication: ANALGESIC THERAPY
     Dosage: 400 MILLIGRAM, UNKNOWN
     Route: 065
  2. PARACETAMOL [Suspect]
     Active Substance: ACETAMINOPHEN
     Indication: EAR PAIN
     Dosage: 3000 MG PER DAY (500 MG, EVERY 4 HRS, ALTERNATED AND COMBINED)
     Route: 065
  3. IBUPROFEN. [Suspect]
     Active Substance: IBUPROFEN
     Indication: PYREXIA
     Dosage: 2400 MG PER DAY (400 MG, EVERY 4 HRS, ALTERNATED AND COMBINED), 0?1?0?1?0?1
     Route: 065
  4. IBUPROFEN. [Suspect]
     Active Substance: IBUPROFEN
     Indication: EAR PAIN
     Dosage: 400 MILLIGRAM, EVERY 8 HOURS, 0?1?0?1?0?1
     Route: 065
  5. PARACETAMOL [Suspect]
     Active Substance: ACETAMINOPHEN
     Indication: PYREXIA
     Dosage: 500 MILLIGRAM, EVERY 8 HOURS, 1?0?1?0?1?0
     Route: 065

REACTIONS (11)
  - Proteinuria [Unknown]
  - Blood creatinine increased [Recovered/Resolved]
  - Drug ineffective [Recovered/Resolved]
  - Acute kidney injury [Recovered/Resolved]
  - Microalbuminuria [Recovered/Resolved]
  - Albuminuria [Not Recovered/Not Resolved]
  - Catarrh [Recovered/Resolved]
  - Liver disorder [Recovered/Resolved]
  - Hepatic enzyme increased [Recovered/Resolved]
  - Blood test abnormal [Recovered/Resolved]
  - Drug ineffective [Unknown]
